FAERS Safety Report 6825630-9 (Version None)
Quarter: 2010Q3

REPORT INFORMATION
  Report Type: 
  Country: None (occurrence: None)
  Receive Date: 20100708
  Receipt Date: 20070404
  Transmission Date: 20110219
  Serious: No
  Sender: FDA-Public Use
  Company Number: US-PFIZER INC-2007001441

PATIENT
  Sex: Female
  Weight: 61.69 kg

DRUGS (13)
  1. CHANTIX [Suspect]
     Indication: SMOKING CESSATION THERAPY
     Route: 048
     Dates: start: 20061128
  2. FISH OIL [Concomitant]
  3. CENTRUM SILVER [Concomitant]
  4. BAYER WOMEN'S [Concomitant]
  5. MONTELUKAST [Concomitant]
  6. ACIPHEX [Concomitant]
  7. LIPITOR [Concomitant]
  8. ADVAIR DISKUS 100/50 [Concomitant]
     Route: 055
  9. COMBIVENT [Concomitant]
     Route: 055
     Dates: start: 20060101
  10. SPIRIVA [Concomitant]
     Route: 055
     Dates: start: 20061122
  11. XANAX [Concomitant]
  12. ALL OTHER THERAPEUTIC PRODUCTS [Concomitant]
     Route: 055
     Dates: end: 20060101
  13. ALL OTHER THERAPEUTIC PRODUCTS [Concomitant]

REACTIONS (7)
  - COUGH [None]
  - HEADACHE [None]
  - INFECTION [None]
  - INFLUENZA [None]
  - NAUSEA [None]
  - ORAL HERPES [None]
  - THROAT IRRITATION [None]
